FAERS Safety Report 8343129-8 (Version None)
Quarter: 2012Q2

REPORT INFORMATION
  Report Type: 
  Country: None (occurrence: None)
  Receive Date: 20120504
  Receipt Date: 20120504
  Transmission Date: 20120825
  Serious: Yes (Other)
  Sender: FDA-Public Use
  Company Number: None

PATIENT
  Sex: Male

DRUGS (1)
  1. BUPROPION HCL [Suspect]
     Indication: MAJOR DEPRESSION
     Dosage: 150 MG. BID P.O.
     Route: 048
     Dates: start: 20060101

REACTIONS (3)
  - ADVERSE DRUG REACTION [None]
  - DRUG INEFFECTIVE [None]
  - PRODUCT SUBSTITUTION ISSUE [None]
